FAERS Safety Report 5880494-5 (Version None)
Quarter: 2008Q3

REPORT INFORMATION
  Report Type: 
  Country: None (occurrence: None)
  Receive Date: 20080912
  Receipt Date: 20080601
  Transmission Date: 20090109
  Serious: No
  Sender: FDA-Public Use
  Company Number: US-ABBOTT-08P-163-0454294-00

PATIENT
  Sex: Female

DRUGS (5)
  1. HUMIRA [Suspect]
     Indication: PSORIASIS
     Route: 058
     Dates: start: 20080528
  2. HYDROXYZINE [Concomitant]
     Indication: PRURITUS
     Route: 048
  3. LIGHT THERAPY [Concomitant]
     Indication: PSORIASIS
     Route: 061
  4. OLUX E FOAM [Concomitant]
     Indication: PSORIASIS
     Route: 061
  5. CLOBETASOL PROPIONATE [Concomitant]
     Indication: PSORIASIS
     Route: 061

REACTIONS (1)
  - PRURITUS [None]
